FAERS Safety Report 16290109 (Version 1)
Quarter: 2019Q2

REPORT INFORMATION
  Report Type: Report from Study
  Country: CA (occurrence: CA)
  Receive Date: 20190509
  Receipt Date: 20190509
  Transmission Date: 20190711
  Serious: Yes (Other)
  Sender: FDA-Public Use
  Company Number: CA-B.I. PHARMACEUTICALS,INC./RIDGEFIELD-2018-BI-025595

PATIENT
  Sex: Female

DRUGS (6)
  1. GILOTRIF [Suspect]
     Active Substance: AFATINIB
     Indication: LUNG CANCER METASTATIC
     Route: 048
     Dates: start: 20180420, end: 20180502
  2. BETAMETHASONE. [Concomitant]
     Active Substance: BETAMETHASONE
     Indication: RASH
     Route: 065
  3. LOMOTIL [Suspect]
     Active Substance: ATROPINE SULFATE\DIPHENOXYLATE HYDROCHLORIDE
     Indication: DIARRHOEA
     Route: 065
  4. MARIJUANA [Concomitant]
     Active Substance: CANNABIS SATIVA SUBSP. INDICA TOP
     Indication: PRODUCT USED FOR UNKNOWN INDICATION
     Route: 065
  5. ATROPINE. [Concomitant]
     Active Substance: ATROPINE
     Indication: DIARRHOEA
     Route: 065
  6. CYCLOSPORIN [Concomitant]
     Active Substance: CYCLOSPORINE
     Indication: RASH
     Route: 065

REACTIONS (26)
  - Gastrointestinal motility disorder [Unknown]
  - Nail infection [Not Recovered/Not Resolved]
  - Nail disorder [Not Recovered/Not Resolved]
  - Peripheral swelling [Not Recovered/Not Resolved]
  - Diarrhoea [Not Recovered/Not Resolved]
  - Tongue erythema [Unknown]
  - Rash [Not Recovered/Not Resolved]
  - Pain in extremity [Not Recovered/Not Resolved]
  - Fungal infection [Not Recovered/Not Resolved]
  - Skin disorder [Not Recovered/Not Resolved]
  - Decreased appetite [Unknown]
  - Malignant neoplasm progression [Not Recovered/Not Resolved]
  - Onychomadesis [Not Recovered/Not Resolved]
  - Localised infection [Not Recovered/Not Resolved]
  - Dysgeusia [Not Recovered/Not Resolved]
  - Dry mouth [Not Recovered/Not Resolved]
  - Eye pain [Not Recovered/Not Resolved]
  - Skin exfoliation [Not Recovered/Not Resolved]
  - Diarrhoea [Unknown]
  - Glossodynia [Not Recovered/Not Resolved]
  - Fatigue [Unknown]
  - Paronychia [Unknown]
  - Oral pain [Not Recovered/Not Resolved]
  - Traumatic haematoma [Not Recovered/Not Resolved]
  - Dysgeusia [Recovered/Resolved]
  - Chapped lips [Not Recovered/Not Resolved]
